FAERS Safety Report 17473727 (Version 1)
Quarter: 2020Q1

REPORT INFORMATION
  Report Type: Spontaneous
  Country: US (occurrence: US)
  Receive Date: 20200218
  Receipt Date: 20200218
  Transmission Date: 20200409
  Serious: No
  Sender: FDA-Public Use
  Company Number: None

PATIENT
  Age: 59 Year
  Sex: Male

DRUGS (7)
  1. LANTUS [Concomitant]
     Active Substance: INSULIN GLARGINE
  2. IMFINZI [Suspect]
     Active Substance: DURVALUMAB
     Indication: HYPERLIPIDAEMIA
     Dosage: ?          OTHER FREQUENCY:Q14DAYS;?
     Route: 042
     Dates: start: 20190821
  3. IMFINZI [Suspect]
     Active Substance: DURVALUMAB
     Indication: BRONCHIAL CARCINOMA
     Dosage: ?          OTHER FREQUENCY:Q14DAYS ;?
     Route: 042
  4. HYDROCHLOROTHIAZIDE. [Concomitant]
     Active Substance: HYDROCHLOROTHIAZIDE
  5. IMFINZI [Suspect]
     Active Substance: DURVALUMAB
     Indication: BRONCHIAL CARCINOMA
     Dosage: ?          OTHER FREQUENCY:Q14DAYS;?
     Route: 042
     Dates: start: 20190821
  6. IMFINZI [Suspect]
     Active Substance: DURVALUMAB
     Indication: HYPERLIPIDAEMIA
     Dosage: ?          OTHER FREQUENCY:Q14DAYS ;?
     Route: 042
  7. OXYCODONE [Concomitant]
     Active Substance: OXYCODONE

REACTIONS (2)
  - Brain neoplasm [None]
  - Therapy cessation [None]

NARRATIVE: CASE EVENT DATE: 20200217
